FAERS Safety Report 4373469-9 (Version None)
Quarter: 2004Q1

REPORT INFORMATION
  Report Type: 
  Country: None (occurrence: None)
  Receive Date: 20040305
  Receipt Date: 20031222
  Transmission Date: 20041129
  Serious: Yes (Other)
  Sender: FDA-Public Use
  Company Number: 2003UW17064

PATIENT
  Age: 54 Year
  Sex: Male
  Weight: 78.0187 kg

DRUGS (4)
  1. CRESTOR [Suspect]
     Indication: BLOOD CHOLESTEROL INCREASED
     Dosage: 20 MG PO
     Route: 048
     Dates: start: 20031119
  2. CRESTOR [Suspect]
     Indication: BLOOD TRIGLYCERIDES INCREASED
     Dosage: 20 MG PO
     Route: 048
     Dates: start: 20031119
  3. COUMADIN [Concomitant]
  4. LOPRESSOR [Concomitant]

REACTIONS (1)
  - NEPHROLITHIASIS [None]
